FAERS Safety Report 9194855 (Version 1)
Quarter: 2013Q1

REPORT INFORMATION
  Report Type: Spontaneous
  Country: US (occurrence: US)
  Receive Date: 20130328
  Receipt Date: 20130328
  Transmission Date: 20140127
  Serious: No
  Sender: FDA-Public Use
  Company Number: US-ALLERGAN-1302155US

PATIENT
  Sex: Female

DRUGS (4)
  1. LATISSE 0.03% [Suspect]
     Indication: GROWTH OF EYELASHES
     Dosage: 2 GTT, QHS
     Route: 061
     Dates: start: 201301
  2. ZOLOFT                             /01011401/ [Concomitant]
     Indication: PANIC ATTACK
     Dosage: 25 MG, QD
  3. ZYRTEC                             /00884302/ [Concomitant]
     Indication: HYPERSENSITIVITY
     Dosage: UNK UNK, QHS
     Route: 047
  4. ZOCOR [Concomitant]
     Indication: BLOOD CHOLESTEROL INCREASED
     Dosage: 20 MG, QD
     Route: 048

REACTIONS (5)
  - Hypopigmentation of eyelid [Unknown]
  - Inappropriate schedule of drug administration [Unknown]
  - Skin discolouration [Unknown]
  - Blepharal pigmentation [Unknown]
  - Therapeutic response decreased [Unknown]
